FAERS Safety Report 26174089 (Version 1)
Quarter: 2025Q4

REPORT INFORMATION
  Report Type: Spontaneous
  Country: EU (occurrence: EU)
  Receive Date: 20251218
  Receipt Date: 20251218
  Transmission Date: 20260118
  Serious: Yes (Other)
  Sender: ACCORD
  Company Number: None

PATIENT
  Age: 30 Year
  Sex: Male
  Weight: 86 kg

DRUGS (7)
  1. QUETIAPINE FUMARATE [Suspect]
     Active Substance: QUETIAPINE FUMARATE
     Indication: Mental disorder
  2. CYAMEMAZINE [Suspect]
     Active Substance: CYAMEMAZINE
     Indication: Product used for unknown indication
     Dosage: STRENGTH: 25 MG, SCORED
     Dates: start: 20250804
  3. PAROXETINE [Suspect]
     Active Substance: PAROXETINE
     Indication: Mental disorder
     Dates: start: 202411
  4. RILPIVIRINE [Suspect]
     Active Substance: RILPIVIRINE
     Indication: Product used for unknown indication
     Dosage: STRENGTH: 900 MG, PROLONGED-RELEASE INJECTABLE SUSPENSION
  5. PRAZEPAM [Concomitant]
     Active Substance: PRAZEPAM
  6. DESLORATADINE [Concomitant]
     Active Substance: DESLORATADINE
  7. CABOTEGRAVIR [Concomitant]
     Active Substance: CABOTEGRAVIR
     Dosage: STRENGTH: 600 MG, PROLONGED-RELEASE INJECTABLE SUSPENSION

REACTIONS (2)
  - Enuresis [Not Recovered/Not Resolved]
  - Polyuria [Not Recovered/Not Resolved]

NARRATIVE: CASE EVENT DATE: 20241201
